FAERS Safety Report 9153993 (Version 1)
Quarter: 2013Q1

REPORT INFORMATION
  Report Type: Spontaneous
  Country: US (occurrence: None)
  Receive Date: 20130205
  Receipt Date: 20130205
  Transmission Date: 20140127
  Serious: Yes (Other)
  Sender: FDA-Public Use
  Company Number: TPA2013A01154

PATIENT
  Age: 77 Year
  Sex: Female

DRUGS (4)
  1. ADENURIC (FEBUXOSTAT) [Suspect]
     Indication: GOUTY TOPHUS
     Dosage: 1 IN 1 D
     Route: 048
     Dates: start: 20111017, end: 20111212
  2. BISOPROLOL (BISOPROLOL) [Concomitant]
  3. MARCUMAR (PHENPROCOUMON) [Concomitant]
  4. RAMIPRIL (RAMIPRIL) [Concomitant]

REACTIONS (1)
  - Left ventricular failure [None]
